FAERS Safety Report 15239711 (Version 1)
Quarter: 2018Q3

REPORT INFORMATION
  Report Type: Spontaneous
  Country: US (occurrence: US)
  Receive Date: 20180803
  Receipt Date: 20180803
  Transmission Date: 20181010
  Serious: No
  Sender: FDA-Public Use
  Company Number: US-SUNOVION-2018SUN002958

PATIENT
  Sex: Female
  Weight: 88.44 kg

DRUGS (9)
  1. GABAPENTIN. [Concomitant]
     Active Substance: GABAPENTIN
     Indication: NEURALGIA
     Dosage: 300 MG, TID
     Route: 048
  2. LATUDA [Suspect]
     Active Substance: LURASIDONE HYDROCHLORIDE
     Indication: DEPRESSION
     Dosage: 40MG HS
     Route: 048
     Dates: start: 201807
  3. PRAZOSIN. [Concomitant]
     Active Substance: PRAZOSIN
     Indication: POST-TRAUMATIC STRESS DISORDER
     Dosage: 1 MG, QD
     Route: 048
  4. REQUIP [Concomitant]
     Active Substance: ROPINIROLE HYDROCHLORIDE
     Dosage: 3 MG, QD
     Route: 048
  5. MORPHINE [Concomitant]
     Active Substance: MORPHINE
     Dosage: 15 MG, TID
     Route: 048
  6. CYMBALTA [Concomitant]
     Active Substance: DULOXETINE HYDROCHLORIDE
     Dosage: 2? 50 MG CAPS QD
     Route: 048
  7. ORPHENADRINE [Concomitant]
     Active Substance: ORPHENADRINE
     Indication: MUSCLE SPASMS
     Dosage: 100 MG, BID
     Route: 048
  8. POTASSIUM [Concomitant]
     Active Substance: POTASSIUM
     Dosage: 10 MEG, QID
  9. FERROUS SULFATE. [Concomitant]
     Active Substance: FERROUS SULFATE
     Dosage: 325 MG, TID
     Route: 048

REACTIONS (3)
  - Lethargy [Not Recovered/Not Resolved]
  - Off label use [Unknown]
  - Somnolence [Not Recovered/Not Resolved]
